FAERS Safety Report 7653675-8 (Version None)
Quarter: 2011Q3

REPORT INFORMATION
  Report Type: 
  Country: None (occurrence: None)
  Receive Date: 20110728
  Receipt Date: 20100929
  Transmission Date: 20111222
  Serious: Yes (Disabling, Other)
  Sender: FDA-Public Use
  Company Number: 2010SP052111

PATIENT
  Age: 60 Year
  Sex: Male

DRUGS (4)
  1. INTRON A [Suspect]
     Indication: BASAL CELL CARCINOMA
     Dosage: ID ; ID
     Dates: start: 20091111, end: 20091124
  2. INTRON A [Suspect]
     Indication: BASAL CELL CARCINOMA
     Dosage: ID ; ID
     Dates: start: 20090615, end: 20100629
  3. ADVIL LIQUI-GELS [Concomitant]
  4. SYNTHROID [Concomitant]

REACTIONS (3)
  - OTOTOXICITY [None]
  - DEAFNESS [None]
  - TINNITUS [None]
